FAERS Safety Report 7081163-9 (Version None)
Quarter: 2010Q4

REPORT INFORMATION
  Report Type: 
  Country: None (occurrence: None)
  Receive Date: 20101103
  Receipt Date: 20101025
  Transmission Date: 20110411
  Serious: Yes (Other)
  Sender: FDA-Public Use
  Company Number: B0682447A

PATIENT
  Age: 40 Year

DRUGS (1)
  1. ERYTHROMYCIN [Suspect]
     Route: 058

REACTIONS (3)
  - DRUG ADMINISTRATION ERROR [None]
  - INFUSION SITE EXTRAVASATION [None]
  - PAIN [None]
